FAERS Safety Report 17677399 (Version 1)
Quarter: 2020Q2

REPORT INFORMATION
  Report Type: Spontaneous
  Country: FR (occurrence: FR)
  Receive Date: 20200416
  Receipt Date: 20200416
  Transmission Date: 20200714
  Serious: Yes (Hospitalization, Other)
  Sender: FDA-Public Use
  Company Number: FR-JNJFOC-20200416802

PATIENT
  Age: 41 Year
  Sex: Female

DRUGS (1)
  1. RIVAROXABAN [Suspect]
     Active Substance: RIVAROXABAN
     Indication: PRODUCT USED FOR UNKNOWN INDICATION
     Dosage: UNK
     Route: 048
     Dates: start: 201510

REACTIONS (10)
  - Renal failure [Recovered/Resolved]
  - Thrombocytopenia [Recovered/Resolved]
  - Hepatocellular injury [Recovered/Resolved]
  - Cholestasis [Recovered/Resolved]
  - Left ventricular dysfunction [Recovered/Resolved]
  - Anaemia [Recovered/Resolved]
  - Skin necrosis [Recovered/Resolved]
  - Cardiac failure [Recovered/Resolved]
  - Myocardial infarction [Recovered/Resolved]
  - Troponin increased [Recovered/Resolved]

NARRATIVE: CASE EVENT DATE: 2015
